FAERS Safety Report 5241123-7 (Version None)
Quarter: 2007Q1

REPORT INFORMATION
  Report Type: 
  Country: None (occurrence: None)
  Receive Date: 20070214
  Receipt Date: 20070214
  Transmission Date: 20070707
  Serious: Yes (Other)
  Sender: FDA-Public Use
  Company Number: None

PATIENT
  Age: 40 Year
  Sex: Female
  Weight: 63.5036 kg

DRUGS (2)
  1. PROZAC [Suspect]
     Indication: ANXIETY
     Dosage: 20 MG 1X DAILY
     Dates: start: 20060701, end: 20060730
  2. PROZAC [Suspect]
     Indication: DEPRESSION
     Dosage: 20 MG 1X DAILY
     Dates: start: 20060701, end: 20060730

REACTIONS (4)
  - ANORGASMIA [None]
  - GENITAL DISORDER FEMALE [None]
  - HYPOAESTHESIA [None]
  - LIBIDO DECREASED [None]
